FAERS Safety Report 5756661-8 (Version None)
Quarter: 2008Q2

REPORT INFORMATION
  Report Type: 
  Country: None (occurrence: None)
  Receive Date: 20080528
  Receipt Date: 20080515
  Transmission Date: 20081010
  Serious: Yes (Hospitalization)
  Sender: FDA-Public Use
  Company Number: US023425

PATIENT
  Age: 68 Year
  Sex: Male
  Weight: 84.81 kg

DRUGS (10)
  1. BENDAMUSTINE HCI [Suspect]
     Indication: NON-HODGKIN'S LYMPHOMA
     Dosage: 100 MG D1, D2 Q 35 DAYS INTRAVENOUS
     Route: 042
     Dates: start: 20080325
  2. VELCADE [Suspect]
     Indication: NON-HODGKIN'S LYMPHOMA
     Dosage: 3.3 MG/M2 D1, D8, D15, D21 Q 35 DAYS INTRAVENOUS
     Route: 042
     Dates: start: 20080325
  3. RITUXIMAB [Concomitant]
  4. DIFLUCAN [Concomitant]
  5. ACYCLOVIR SODIUM [Concomitant]
  6. LASIX [Concomitant]
  7. POTASSIUM CHLORIDE [Concomitant]
  8. METAMUCIL [Concomitant]
  9. LEVAQUIN [Concomitant]
  10. FLUCONAZOLE [Concomitant]

REACTIONS (19)
  - ASCITES [None]
  - AZOTAEMIA [None]
  - CHILLS [None]
  - DEHYDRATION [None]
  - FATIGUE [None]
  - HERPES SIMPLEX [None]
  - HYDRONEPHROSIS [None]
  - PANCYTOPENIA [None]
  - PLEURAL EFFUSION [None]
  - PYREXIA [None]
  - RED BLOOD CELLS URINE POSITIVE [None]
  - RENAL FAILURE ACUTE [None]
  - RENAL TUBULAR NECROSIS [None]
  - STOMATITIS [None]
  - TREMOR [None]
  - URINARY TRACT INFECTION [None]
  - URINARY TRACT OBSTRUCTION [None]
  - UROSEPSIS [None]
  - VIRUS CULTURE POSITIVE [None]
